FAERS Safety Report 11505620 (Version 1)
Quarter: 2015Q3

REPORT INFORMATION
  Report Type: Spontaneous
  Country: US (occurrence: US)
  Receive Date: 20150915
  Receipt Date: 20150915
  Transmission Date: 20151125
  Serious: No
  Sender: FDA-Public Use
  Company Number: US-ROCHE-789815

PATIENT
  Sex: Female

DRUGS (2)
  1. COPEGUS [Suspect]
     Active Substance: RIBAVIRIN
     Indication: HEPATITIS C
     Dosage: PLANNED 24 WEEKS COURSE.DIVIDED DOSES.
     Route: 048
  2. PEGASYS [Suspect]
     Active Substance: PEGINTERFERON ALFA-2A
     Indication: HEPATITIS C
     Dosage: PLANNED 24 WEEKS COURSE.
     Route: 058

REACTIONS (11)
  - Wheezing [Unknown]
  - Fatigue [Unknown]
  - Rash [Unknown]
  - Pruritus [Unknown]
  - Cough [Unknown]
  - Musculoskeletal chest pain [Unknown]
  - Stomatitis [Unknown]
  - Dyspnoea [Unknown]
  - Hypophagia [Unknown]
  - Oral herpes [Unknown]
  - Eating disorder [Unknown]
